FAERS Safety Report 20310181 (Version 2)
Quarter: 2025Q1

REPORT INFORMATION
  Report Type: Report from Study
  Country: IN (occurrence: IN)
  Receive Date: 20220107
  Receipt Date: 20250106
  Transmission Date: 20250408
  Serious: Yes (Death, Hospitalization)
  Sender: INCYTE
  Company Number: IN-002147023-NVSC2021IN301625

PATIENT

DRUGS (1)
  1. RUXOLITINIB [Suspect]
     Active Substance: RUXOLITINIB
     Indication: Primary myelofibrosis
     Dosage: 20 MG, BID
     Route: 048
     Dates: start: 20211028, end: 20211218

REACTIONS (2)
  - Lower respiratory tract infection [Unknown]
  - Leukaemia [Fatal]

NARRATIVE: CASE EVENT DATE: 20211218
